FAERS Safety Report 7375427-9 (Version None)
Quarter: 2011Q1

REPORT INFORMATION
  Report Type: 
  Country: None (occurrence: None)
  Receive Date: 20110325
  Receipt Date: 20110321
  Transmission Date: 20110831
  Serious: Yes (Other)
  Sender: FDA-Public Use
  Company Number: DE-BAXTER-2011BH001569

PATIENT
  Age: 64 Year
  Sex: Male
  Weight: 105 kg

DRUGS (6)
  1. GAMMAGARD LIQUID [Suspect]
     Route: 042
     Dates: start: 20110104, end: 20110104
  2. GAMMAGARD LIQUID [Suspect]
     Indication: PLASMACYTOMA
     Route: 042
     Dates: start: 20101207, end: 20101207
  3. GAMMAGARD LIQUID [Suspect]
     Indication: SECONDARY IMMUNODEFICIENCY
     Route: 042
     Dates: start: 20101207, end: 20101207
  4. GAMMAGARD LIQUID [Suspect]
     Route: 042
     Dates: start: 20110104, end: 20110104
  5. GAMMAGARD LIQUID [Suspect]
     Route: 042
     Dates: start: 20110104, end: 20110104
  6. GAMMAGARD LIQUID [Suspect]
     Indication: IMMUNODEFICIENCY
     Route: 042
     Dates: start: 20101207, end: 20101207

REACTIONS (6)
  - CHILLS [None]
  - LOSS OF CONSCIOUSNESS [None]
  - CONVULSION [None]
  - DIZZINESS [None]
  - ENURESIS [None]
  - HYPERHIDROSIS [None]
